FAERS Safety Report 19287927 (Version 1)
Quarter: 2021Q2

REPORT INFORMATION
  Report Type: Spontaneous
  Country: US (occurrence: US)
  Receive Date: 20210521
  Receipt Date: 20210521
  Transmission Date: 20210717
  Serious: No
  Sender: FDA-Public Use
  Company Number: US-SA-2021SA160089

PATIENT
  Age: 73 Year
  Sex: Female

DRUGS (1)
  1. LANTUS [Suspect]
     Active Substance: INSULIN GLARGINE
     Indication: DIABETES MELLITUS
     Dosage: 20 IU, BID
     Route: 065

REACTIONS (4)
  - Dyspnoea [Unknown]
  - Visual impairment [Unknown]
  - Product storage error [Unknown]
  - Inappropriate schedule of product administration [Unknown]
